FAERS Safety Report 4848424-2 (Version None)
Quarter: 2005Q4

REPORT INFORMATION
  Report Type: 
  Country: None (occurrence: None)
  Receive Date: 20051208
  Receipt Date: 20051130
  Transmission Date: 20060501
  Serious: Yes (Hospitalization, Congenital Anomaly)
  Sender: FDA-Public Use
  Company Number: 8013248

PATIENT
  Sex: Male

DRUGS (7)
  1. PAXIL CR [Suspect]
     Indication: DEPRESSION
  2. ZYRTEC [Suspect]
     Indication: MULTIPLE ALLERGIES
  3. KEPPRA [Suspect]
     Dosage: 2000MG PER DAY
     Dates: end: 20050516
  4. DILANTIN [Suspect]
     Indication: EPILEPSY
  5. SEROQUEL [Suspect]
     Indication: SLEEP DISORDER
  6. METHYLCELLULOSE [Concomitant]
  7. FOLIC ACID [Concomitant]
     Indication: ANAEMIA

REACTIONS (4)
  - ADRENAL INSUFFICIENCY [None]
  - ARNOLD-CHIARI MALFORMATION [None]
  - DRUG EXPOSURE DURING PREGNANCY [None]
  - PREMATURE BABY [None]
